FAERS Safety Report 11625884 (Version 2)
Quarter: 2015Q4

REPORT INFORMATION
  Report Type: Spontaneous
  Country: US (occurrence: US)
  Receive Date: 20151013
  Receipt Date: 20151216
  Transmission Date: 20160304
  Serious: No
  Sender: FDA-Public Use
  Company Number: US-PFIZER INC-2015326206

PATIENT
  Age: 73 Year
  Sex: Female
  Weight: 48.98 kg

DRUGS (7)
  1. METOPROLOL [Concomitant]
     Active Substance: METOPROLOL
     Dosage: 50 MG, 2X/DAY
     Route: 048
     Dates: start: 201410
  2. LETROZOLE. [Suspect]
     Active Substance: LETROZOLE
     Indication: BLOOD OESTROGEN ABNORMAL
     Dosage: 2.5 MG, DAILY
     Route: 048
     Dates: start: 201505, end: 20151118
  3. ZOMETA [Concomitant]
     Active Substance: ZOLEDRONIC ACID
     Indication: BONE DISORDER
     Dosage: UNK, ONCE A MONTH
     Route: 042
  4. IBRANCE [Suspect]
     Active Substance: PALBOCICLIB
     Dosage: 100 MG, CYCLIC (DAILY FOR THREE WEEKS AND THEN OFF FOR A WEEK)
     Route: 048
     Dates: start: 20150520, end: 20151118
  5. METOPROLOL [Concomitant]
     Active Substance: METOPROLOL
     Indication: HYPERTENSION
     Dosage: 50 MG, 2X/DAY (50 MG TABLET TWICE DAILY)
     Route: 048
     Dates: start: 201408
  6. VITAFUSION [Concomitant]
     Indication: BONE DISORDER
     Dosage: 250 MG, DAILY
     Route: 048
  7. IBRANCE [Suspect]
     Active Substance: PALBOCICLIB
     Indication: BREAST CANCER STAGE IV
     Dosage: 100 MG, DAILY (100MG CAPSULE ONCE DAILY, BY MOUTH FOR 21 DAYS, OFF FOR 7 DAYS)
     Route: 048
     Dates: start: 201505

REACTIONS (6)
  - Breast cancer stage IV [Unknown]
  - Fatigue [Recovering/Resolving]
  - Asthenia [Recovering/Resolving]
  - Bone disorder [Unknown]
  - Disease progression [Unknown]
  - White blood cell count decreased [Unknown]

NARRATIVE: CASE EVENT DATE: 2015
